FAERS Safety Report 8535720 (Version 3)
Quarter: 2012Q4

REPORT INFORMATION
  Report Type: 
  Country: GR (occurrence: GR)
  Receive Date: 20120430
  Receipt Date: 20121017
  Transmission Date: 20130627
  Serious: Yes (Other)
  Sender: FDA-Public Use
  Company Number: PHHY2012GR034435

PATIENT
  Age: 52 Year
  Sex: Female

DRUGS (2)
  1. ZOLEDRONIC ACID [Suspect]
     Indication: METASTASES TO BONE
     Dosage: UNK
  2. CHLORHEXIDINE [Concomitant]
     Dosage: UNK

REACTIONS (7)
  - Lip ulceration [Not Recovered/Not Resolved]
  - Oral disorder [Recovered/Resolved]
  - Skin lesion [Recovered/Resolved]
  - Osteonecrosis of jaw [Unknown]
  - Escherichia urinary tract infection [Unknown]
  - Anaemia [Unknown]
  - White blood cell count increased [Unknown]
